FAERS Safety Report 5207586-8 (Version None)
Quarter: 2007Q1

REPORT INFORMATION
  Report Type: 
  Country: None (occurrence: None)
  Receive Date: 20070112
  Receipt Date: 20070105
  Transmission Date: 20070707
  Serious: Yes (Hospitalization)
  Sender: FDA-Public Use
  Company Number: CH-AMGEN-UK205717

PATIENT
  Age: 56 Year
  Sex: Male

DRUGS (7)
  1. NEUPOGEN [Suspect]
     Indication: NEUTROPENIA
     Route: 058
     Dates: start: 20061101, end: 20061211
  2. PANTOZOL [Concomitant]
     Route: 048
  3. VALTREX [Concomitant]
     Route: 048
  4. PREDNISONE TAB [Concomitant]
     Route: 065
  5. CYCLOPHOSPHAMIDE [Concomitant]
     Route: 065
  6. DOXORUBICIN HYDROCHLORIDE [Concomitant]
     Route: 065
  7. VINCRISTINE [Concomitant]
     Route: 065

REACTIONS (3)
  - CHEST PAIN [None]
  - PERICARDIAL EFFUSION [None]
  - PERICARDITIS [None]
